FAERS Safety Report 11803214 (Version 4)
Quarter: 2016Q1

REPORT INFORMATION
  Report Type: Report from Study
  Country: PT (occurrence: PT)
  Receive Date: 20151204
  Receipt Date: 20160205
  Transmission Date: 20160525
  Serious: Yes (Life-Threatening)
  Sender: FDA-Public Use
  Company Number: PT-B.I. PHARMACEUTICALS,INC./RIDGEFIELD-2015-BI-67544BI

PATIENT
  Age: 33 Year
  Sex: Female
  Weight: 79 kg

DRUGS (10)
  1. SEVOFLURANE. [Suspect]
     Active Substance: SEVOFLURANE
     Indication: ANAESTHESIA
     Route: 055
     Dates: start: 20151130
  2. BI 655075 [Suspect]
     Active Substance: IDARUCIZUMAB
     Indication: PROCOAGULANT THERAPY
     Dosage: 2.5 G
     Route: 042
     Dates: start: 20151130, end: 20151130
  3. FENTANIL [Suspect]
     Active Substance: FENTANYL
     Dosage: DAILY DOSE: 0.10
     Route: 042
     Dates: start: 20151130
  4. ETOMIDATO [Suspect]
     Active Substance: ETOMIDATE
     Indication: ANAESTHESIA
     Dosage: DAILY DOSE: 20
     Route: 042
     Dates: start: 20151130
  5. GENTAMICINE [Suspect]
     Active Substance: GENTAMICIN
     Indication: PROPHYLAXIS
     Dosage: 60 MG
     Route: 042
     Dates: start: 20151130
  6. SEVOFLURANE. [Suspect]
     Active Substance: SEVOFLURANE
     Route: 055
     Dates: start: 20151130
  7. FENTANIL [Suspect]
     Active Substance: FENTANYL
     Indication: ANAESTHESIA
     Dosage: DAILY DOSE: 0.15
     Route: 042
     Dates: start: 20151130
  8. ROCURONIUM [Suspect]
     Active Substance: ROCURONIUM BROMIDE
     Indication: ANAESTHESIA
     Dosage: 80 MG
     Route: 042
     Dates: start: 20151130
  9. CEFTRIAXONE. [Suspect]
     Active Substance: CEFTRIAXONE
     Indication: PROPHYLAXIS
     Dosage: 1 G
     Route: 042
     Dates: start: 20151130
  10. VANCOMICINA [Suspect]
     Active Substance: VANCOMYCIN
     Indication: PROPHYLAXIS
     Dosage: 1 G
     Route: 042
     Dates: start: 20151130

REACTIONS (3)
  - Hypoxia [Recovered/Resolved]
  - Bradycardia [Recovered/Resolved]
  - Hypotension [Recovered/Resolved]

NARRATIVE: CASE EVENT DATE: 20151130
